FAERS Safety Report 6691510-5 (Version None)
Quarter: 2010Q2

REPORT INFORMATION
  Report Type: 
  Country: None (occurrence: None)
  Receive Date: 20100422
  Receipt Date: 20100412
  Transmission Date: 20101027
  Serious: Yes (Other)
  Sender: FDA-Public Use
  Company Number: IT-BAYER-201022384GPV

PATIENT
  Age: 69 Year
  Sex: Male
  Weight: 77 kg

DRUGS (19)
  1. SORAFENIB [Suspect]
     Indication: DRUG USE FOR UNKNOWN INDICATION
     Dosage: TOTAL DAILY DOSE: 800 MG
     Route: 048
     Dates: start: 20080207, end: 20080226
  2. SORAFENIB [Suspect]
     Dosage: TOTAL DAILY DOSE: 800 MG
     Route: 048
     Dates: start: 20080308, end: 20080310
  3. SORAFENIB [Suspect]
     Dosage: TOTAL DAILY DOSE: 800 MG
     Route: 048
     Dates: start: 20080417, end: 20080509
  4. SORAFENIB [Suspect]
     Dosage: TOTAL DAILY DOSE: 800 MG
     Route: 048
     Dates: start: 20080314, end: 20080410
  5. GEMCITABINE HCL [Suspect]
     Indication: DRUG USE FOR UNKNOWN INDICATION
     Dosage: UNIT DOSE: 1250 MG/M2
     Route: 042
     Dates: start: 20080207, end: 20080207
  6. GEMCITABINE HCL [Suspect]
     Dosage: UNIT DOSE: 1250 MG/M2
     Route: 042
     Dates: start: 20080306, end: 20080306
  7. GEMCITABINE HCL [Suspect]
     Dosage: UNIT DOSE: 1000 MG/M2
     Route: 042
     Dates: start: 20080417, end: 20080417
  8. GEMCITABINE HCL [Suspect]
     Dosage: UNIT DOSE: 1000 MG/M2
     Route: 042
     Dates: start: 20080424, end: 20080424
  9. GEMCITABINE HCL [Suspect]
     Dosage: UNIT DOSE: 1250 MG/M2
     Route: 042
     Dates: start: 20080403, end: 20080403
  10. GEMCITABINE HCL [Suspect]
     Dosage: UNIT DOSE: 1250 MG/M2
     Route: 042
     Dates: start: 20080314, end: 20080314
  11. GEMCITABINE HCL [Suspect]
     Dosage: UNIT DOSE: 1250 MG/M2
     Route: 042
     Dates: start: 20080220, end: 20080220
  12. GEMCITABINE HCL [Suspect]
     Dosage: UNIT DOSE: 1250 MG/M2
     Route: 042
     Dates: start: 20080327, end: 20080327
  13. CISPLATIN [Suspect]
     Indication: DRUG USE FOR UNKNOWN INDICATION
     Dosage: UNIT DOSE: 37.5 MG/M2
     Route: 042
     Dates: start: 20080417, end: 20080417
  14. CISPLATIN [Suspect]
     Dosage: UNIT DOSE: 60 MG/M2
     Route: 042
     Dates: start: 20080327, end: 20080327
  15. CISPLATIN [Suspect]
     Dosage: UNIT DOSE: 75 MG/M2
     Route: 042
     Dates: start: 20080207, end: 20080207
  16. CISPLATIN [Suspect]
     Dosage: UNIT DOSE: 75 MG/M2
     Route: 042
     Dates: start: 20080306, end: 20080306
  17. KARVEZIDE [Concomitant]
     Indication: HYPERTENSION
     Dates: start: 20080122
  18. MEDROL [Concomitant]
     Indication: CHEST PAIN
     Dates: start: 20070101
  19. PLASIL [Concomitant]
     Indication: NAUSEA
     Dosage: 2 VIALS
     Dates: start: 20080311, end: 20080311

REACTIONS (1)
  - DEEP VEIN THROMBOSIS [None]
